FAERS Safety Report 12082675 (Version 2)
Quarter: 2016Q1

REPORT INFORMATION
  Report Type: Spontaneous
  Country: IL (occurrence: IL)
  Receive Date: 20160217
  Receipt Date: 20160229
  Transmission Date: 20160526
  Serious: Yes (Hospitalization, Other)
  Sender: FDA-Public Use
  Company Number: IL-ORION CORPORATION ORION PHARMA-ENTC2016-0071

PATIENT
  Age: 66 Year
  Sex: Male

DRUGS (9)
  1. LEPONEX [Suspect]
     Active Substance: CLOZAPINE
     Route: 065
     Dates: end: 20160106
  2. LEVOPAR [Concomitant]
     Active Substance: BENSERAZIDE\LEVODOPA
     Route: 065
  3. STALEVO [Suspect]
     Active Substance: CARBIDOPA\ENTACAPONE\LEVODOPA
     Route: 065
  4. LEPONEX [Suspect]
     Active Substance: CLOZAPINE
     Indication: HALLUCINATION
     Route: 065
     Dates: start: 20151007
  5. LEPONEX [Suspect]
     Active Substance: CLOZAPINE
     Route: 065
     Dates: start: 201511
  6. ELTROXIN [Concomitant]
     Active Substance: LEVOTHYROXINE
     Route: 065
  7. GUTRON [Concomitant]
     Active Substance: MIDODRINE
     Route: 065
  8. ELATROL [Concomitant]
     Route: 065
  9. CARTIA XT [Concomitant]
     Active Substance: DILTIAZEM HYDROCHLORIDE
     Route: 065

REACTIONS (5)
  - Leukaemia [Recovering/Resolving]
  - H1N1 influenza [Recovering/Resolving]
  - Pneumonia [Recovering/Resolving]
  - Q fever [Recovering/Resolving]
  - Leukopenia [Recovered/Resolved]
